FAERS Safety Report 19236170 (Version 6)
Quarter: 2022Q1

REPORT INFORMATION
  Report Type: Report from Study
  Country: US (occurrence: US)
  Receive Date: 20210510
  Receipt Date: 20220124
  Transmission Date: 20220423
  Serious: Yes (Hospitalization, Other)
  Sender: FDA-Public Use
  Company Number: US-AUROBINDO-AUR-APL-2021-018986

PATIENT
  Age: 69 Year
  Sex: Female
  Weight: 69.4 kg

DRUGS (6)
  1. BELINOSTAT [Suspect]
     Active Substance: BELINOSTAT
     Indication: Haematological malignancy
     Dosage: 1297.5 MILLIGRAM
     Route: 042
     Dates: start: 20210322, end: 20210416
  2. BELINOSTAT [Suspect]
     Active Substance: BELINOSTAT
     Indication: Neoplasm
  3. ATAZANAVIR [Suspect]
     Active Substance: ATAZANAVIR
     Indication: Haematological malignancy
     Dosage: 200 MILLIGRAM
     Route: 048
     Dates: start: 20210405, end: 20210416
  4. HYDROCHLOROTHIAZIDE\TRIAMTERENE [Concomitant]
     Active Substance: HYDROCHLOROTHIAZIDE\TRIAMTERENE
     Dosage: 37.5 MILLIGRAM-25MG  ONCE A DAY
  5. COLACE [Concomitant]
     Active Substance: DOCUSATE SODIUM
     Dosage: 100 MILLIGRAM, TWO TIMES A DAY
     Route: 048
  6. SENOKOT [Concomitant]
     Active Substance: SENNOSIDES
     Dosage: 15 MILLIGRAM, TWO TIMES A DAY
     Route: 048

REACTIONS (5)
  - Lacunar stroke [Recovered/Resolved]
  - Diarrhoea [Not Recovered/Not Resolved]
  - Headache [Not Recovered/Not Resolved]
  - Nausea [Recovered/Resolved]
  - Vomiting [Recovered/Resolved]

NARRATIVE: CASE EVENT DATE: 20210322
